FAERS Safety Report 11557795 (Version 1)
Quarter: 2015Q3

REPORT INFORMATION
  Report Type: Spontaneous
  Country: US (occurrence: US)
  Receive Date: 20150927
  Receipt Date: 20150927
  Transmission Date: 20151125
  Serious: No
  Sender: FDA-Public Use
  Company Number: US-AMGEN-USASP2015098394

PATIENT
  Age: 19 Year
  Sex: Female

DRUGS (2)
  1. ADVIL [Concomitant]
     Active Substance: IBUPROFEN
     Dosage: UNK
  2. ENBREL [Suspect]
     Active Substance: ETANERCEPT
     Indication: ANKYLOSING SPONDYLITIS
     Dosage: 50 MG WEEKLY
     Route: 058
     Dates: start: 20150730

REACTIONS (3)
  - Injection site rash [Recovered/Resolved]
  - Headache [Recovered/Resolved]
  - Injection site bruising [Recovered/Resolved]

NARRATIVE: CASE EVENT DATE: 201508
